FAERS Safety Report 25817540 (Version 1)
Quarter: 2025Q3

REPORT INFORMATION
  Report Type: Spontaneous
  Country: SY (occurrence: SY)
  Receive Date: 20250918
  Receipt Date: 20250918
  Transmission Date: 20251020
  Serious: Yes (Death, Life-Threatening, Hospitalization, Other)
  Sender: Onesource Specialty Pharma
  Company Number: SY-STRIDES ARCOLAB LIMITED-2025OS000701

PATIENT
  Age: 62 Year
  Sex: Female

DRUGS (2)
  1. LABETALOL [Suspect]
     Active Substance: LABETALOL
     Indication: Hypertensive crisis
     Route: 065
  2. OMNIPAQUE [Concomitant]
     Active Substance: IOHEXOL
     Indication: Scan with contrast
     Route: 065

REACTIONS (1)
  - Disease progression [Fatal]
